FAERS Safety Report 21473662 (Version 1)
Quarter: 2022Q4

REPORT INFORMATION
  Report Type: Spontaneous
  Country: US (occurrence: US)
  Receive Date: 20221018
  Receipt Date: 20221018
  Transmission Date: 20230112
  Serious: No
  Sender: FDA-Public Use
  Company Number: US-Santen Inc-2021-USA-011456

PATIENT
  Age: 60 Year
  Sex: Female

DRUGS (2)
  1. NATACYN [Suspect]
     Active Substance: NATAMYCIN
     Indication: Product used for unknown indication
     Route: 047
  2. CYTOMEL [Concomitant]
     Active Substance: LIOTHYRONINE SODIUM
     Indication: Product used for unknown indication

REACTIONS (2)
  - Eye pain [Unknown]
  - Foreign body sensation in eyes [Unknown]
